FAERS Safety Report 11497715 (Version 5)
Quarter: 2017Q1

REPORT INFORMATION
  Report Type: Spontaneous
  Country: DE (occurrence: DE)
  Receive Date: 20150911
  Receipt Date: 20170222
  Transmission Date: 20170428
  Serious: Yes (Life-Threatening, Hospitalization, Disabling)
  Sender: FDA-Public Use
  Company Number: GXKR2015DE004213

PATIENT

DRUGS (7)
  1. PREDNISON [Suspect]
     Active Substance: PREDNISONE
     Dosage: 20 MG/D (TEMPORARY INCREASE DUE TO DISEASE PROGRESSION)
     Route: 048
  2. PREDNISON [Suspect]
     Active Substance: PREDNISONE
     Dosage: 5 MG/D (REDUCED DOSE DUE TO INCREASED INTRAOCULAR PRESSURE)
     Route: 048
  3. PREDNISON [Suspect]
     Active Substance: PREDNISONE
     Indication: PULMONARY SARCOIDOSIS
     Dosage: UNK MG, UNK
     Route: 048
     Dates: start: 20111221, end: 20131223
  4. PREDNISON [Suspect]
     Active Substance: PREDNISONE
     Dosage: 50 MG/D (2.5 YEARS LATER DUE TO RELAPSE)
     Route: 048
  5. PREDNISON [Suspect]
     Active Substance: PREDNISONE
     Dosage: 50 MG/D (STARTED AFTER DIAGNOSIS)
     Route: 048
  6. AZATHIOPRIN HEXAL [Suspect]
     Active Substance: AZATHIOPRINE
     Indication: PULMONARY SARCOIDOSIS
     Dosage: 100 MG, QD
     Route: 048
     Dates: start: 20120608, end: 20131223
  7. AZATHIOPRINE. [Suspect]
     Active Substance: AZATHIOPRINE
     Indication: PULMONARY SARCOIDOSIS
     Dosage: 50 MG, BID
     Route: 048
     Dates: start: 2011, end: 201206

REACTIONS (14)
  - Abnormal behaviour [Unknown]
  - Papilloma viral infection [Unknown]
  - Intraocular pressure increased [Unknown]
  - Fatigue [Unknown]
  - Generalised tonic-clonic seizure [Unknown]
  - Bacterial infection [Unknown]
  - Leukoencephalopathy [Recovering/Resolving]
  - Coma [Unknown]
  - JC virus test positive [Unknown]
  - Organic brain syndrome [Unknown]
  - Confabulation [Unknown]
  - Hemiplegia [Unknown]
  - Skin papilloma [Recovering/Resolving]
  - Aphasia [Unknown]

NARRATIVE: CASE EVENT DATE: 2013
